FAERS Safety Report 9251367 (Version 1)
Quarter: 2013Q1

REPORT INFORMATION
  Report Type: Spontaneous
  Country: US (occurrence: None)
  Receive Date: 20130305
  Receipt Date: 20130305
  Transmission Date: 20140127
  Serious: Yes (Other)
  Sender: FDA-Public Use
  Company Number: 163-21880-12100517

PATIENT
  Age: 72 Year
  Sex: Female
  Weight: 66.68 kg

DRUGS (17)
  1. REVLIMID [Suspect]
     Indication: PLASMA CELL MYELOMA
     Dosage: 25 MG, Q2W THEN REPEAT Q3W, PO
     Route: 048
     Dates: start: 20120515, end: 20120523
  2. ACYCLOVIR (ACICLOVIR) (ACICLOVIR) [Suspect]
  3. AMLODIPINE (AMLODIPINE) [Suspect]
  4. CYMBALTA (DULOXETINE HYDROCHLORIDE) [Suspect]
  5. FOLIC ACID (FOLIC ACID) [Concomitant]
  6. FUROSEMIDE (FUROSEMIDE) [Suspect]
  7. GABAPENTIN (GABAPENTIN) [Suspect]
  8. IMMUNE HEALTH (IMMUNE HEALTH) [Concomitant]
  9. L-GLUTAMINE (LEVOGLUTAMIDE) [Concomitant]
  10. MAGNESIUM (MAGNESIUM) [Concomitant]
  11. METROCREAM (METRONIDAZOLE) [Concomitant]
  12. MULTIVITAMIN (MULTIVITAMINS) [Concomitant]
  13. OMEPRAZOLE (OMEPRAZOLE) [Concomitant]
  14. PREDNISONE (PREDNISONE) [Concomitant]
  15. VESICARE (SOLIFENACIN SUCCINATE) [Concomitant]
  16. VITAMIN B6 (PYRIDOXINE HYDROCHLORIDE) [Concomitant]
  17. VITAMIN B12 (CYANOCOBALAMIN) [Concomitant]

REACTIONS (1)
  - Platelet count decreased [None]
